FAERS Safety Report 20858212 (Version 7)
Quarter: 2022Q4

REPORT INFORMATION
  Report Type: Spontaneous
  Country: CZ (occurrence: CZ)
  Receive Date: 20220521
  Receipt Date: 20221004
  Transmission Date: 20230112
  Serious: Yes (Death, Other)
  Sender: FDA-Public Use
  Company Number: None

PATIENT
  Age: 72 Year
  Sex: Female

DRUGS (85)
  1. CARBAMAZEPINE [Suspect]
     Active Substance: CARBAMAZEPINE
     Indication: Product used for unknown indication
     Dosage: UNK
     Route: 065
  2. NITROFURANTOIN [Suspect]
     Active Substance: NITROFURANTOIN
     Indication: Product used for unknown indication
     Dosage: UNK
     Route: 065
  3. AMOXICILLIN SODIUM [Suspect]
     Active Substance: AMOXICILLIN SODIUM
     Indication: Product used for unknown indication
     Dosage: UNK
     Route: 065
  4. AMOXICILLIN [Suspect]
     Active Substance: AMOXICILLIN
     Indication: Product used for unknown indication
     Dosage: UNK
     Route: 065
  5. CAPTOPRIL [Suspect]
     Active Substance: CAPTOPRIL
     Indication: Product used for unknown indication
     Dosage: UNK, UNCOATED TABLET
     Route: 048
  6. AMOXICILLIN TRIHYDRATE [Suspect]
     Active Substance: AMOXICILLIN
     Indication: Product used for unknown indication
     Dosage: UNK
     Route: 065
  7. AMOXICILLIN TRIHYDRATE [Suspect]
     Active Substance: AMOXICILLIN
     Dosage: UNK
     Route: 065
  8. AMOXICILLIN TRIHYDRATE [Suspect]
     Active Substance: AMOXICILLIN
     Dosage: 20 MILLIGRAM PER MILLILITRE (OPH 2X1 (SPRAY)
     Route: 065
  9. CARBAMAZEPINE [Suspect]
     Active Substance: CARBAMAZEPINE
     Indication: Product used for unknown indication
     Dosage: UNK
     Route: 065
  10. TIAPRIDE HYDROCHLORIDE [Suspect]
     Active Substance: TIAPRIDE HYDROCHLORIDE
     Indication: Product used for unknown indication
     Dosage: UNK
     Route: 065
  11. CHOLECALCIFEROL [Suspect]
     Active Substance: CHOLECALCIFEROL
     Indication: Product used for unknown indication
     Dosage: UNK
     Route: 065
  12. PANCRELIPASE [Concomitant]
     Active Substance: PANCRELIPASE
     Indication: Product used for unknown indication
     Dosage: UNK UNK, AS NEEDED
     Route: 065
  13. PANCRELIPASE [Concomitant]
     Active Substance: PANCRELIPASE
     Dosage: UNK UNK, AS NEEDED
     Route: 065
  14. ENOXAPARIN SODIUM [Concomitant]
     Active Substance: ENOXAPARIN SODIUM
     Indication: Product used for unknown indication
     Dosage: UNK
     Route: 065
  15. AMLODIPINE BESYLATE [Concomitant]
     Active Substance: AMLODIPINE BESYLATE
     Indication: Product used for unknown indication
     Dosage: 5 MG, QD
     Route: 065
  16. AMLODIPINE BESYLATE [Concomitant]
     Active Substance: AMLODIPINE BESYLATE
     Dosage: 5 MG, QD ONCE DAILY (0-0-1, NEWLY)
     Route: 065
  17. AMLODIPINE BESYLATE [Concomitant]
     Active Substance: AMLODIPINE BESYLATE
     Dosage: 1 TABLET
     Route: 048
  18. RILMENIDINE [Concomitant]
     Active Substance: RILMENIDINE
     Indication: Product used for unknown indication
     Dosage: 1 MG, BID
     Route: 065
  19. RILMENIDINE [Concomitant]
     Active Substance: RILMENIDINE
     Dosage: 1 MG, BID
     Route: 065
  20. RILMENIDINE [Concomitant]
     Active Substance: RILMENIDINE
     Dosage: 2 DOSAGE FORM, UNCOATED TABLET
     Route: 048
  21. RILMENIDINE [Concomitant]
     Active Substance: RILMENIDINE
     Dosage: 1 MG, Q12H
     Route: 065
  22. ELIQUIS [Concomitant]
     Active Substance: APIXABAN
     Indication: Product used for unknown indication
     Dosage: UNK
     Route: 065
  23. CORDARONE [Concomitant]
     Active Substance: AMIODARONE HYDROCHLORIDE
     Indication: Product used for unknown indication
     Dosage: 200 MG, QD (1-0-0, MONDAY- FRIDAY)
     Route: 065
  24. CORDARONE [Concomitant]
     Active Substance: AMIODARONE HYDROCHLORIDE
     Dosage: 1 DOSAGE FORM 1 TABLET,  MON-FRI
     Route: 065
  25. SOL [Concomitant]
     Indication: Product used for unknown indication
     Dosage: 225 MG
     Route: 065
  26. RAMIPRIL [Concomitant]
     Active Substance: RAMIPRIL
     Indication: Product used for unknown indication
     Dosage: 10 MG, QD 1/2-0-1, EVENING DOSE BEFORE SLEEPING
     Route: 065
  27. RAMIPRIL [Concomitant]
     Active Substance: RAMIPRIL
     Dosage: 10 MG, QD
     Route: 065
  28. RAMIPRIL [Concomitant]
     Active Substance: RAMIPRIL
     Dosage: UNK, UNCOATED TABLET
     Route: 048
  29. METOCLOPRAMIDE HYDROCHLORIDE [Concomitant]
     Active Substance: METOCLOPRAMIDE HYDROCHLORIDE
     Indication: Product used for unknown indication
     Dosage: UNK UNK, AS NEEDED
     Route: 065
  30. METOCLOPRAMIDE HYDROCHLORIDE [Concomitant]
     Active Substance: METOCLOPRAMIDE HYDROCHLORIDE
     Dosage: UNK, PRN
     Route: 065
  31. XARELTO [Concomitant]
     Active Substance: RIVAROXABAN
     Indication: Product used for unknown indication
     Dosage: 20 MG, QD (AFTER MEAL)
     Route: 065
  32. XARELTO [Concomitant]
     Active Substance: RIVAROXABAN
     Dosage: 20 MG, QD 1 TABLET, AFTER MEAL
     Route: 065
  33. XARELTO [Concomitant]
     Active Substance: RIVAROXABAN
     Dosage: 1 DOSAGE FORM, Q8H, UNCOATED TABLET
     Route: 048
  34. TRAMADOL [Concomitant]
     Active Substance: TRAMADOL
     Indication: Product used for unknown indication
     Dosage: 200 MG, BID
     Route: 065
  35. TRAMADOL [Concomitant]
     Active Substance: TRAMADOL
     Dosage: 200 MG, Q12H
     Route: 065
  36. TRAMADOL [Concomitant]
     Active Substance: TRAMADOL
     Dosage: 2 DOSAGE FORM 2 TABLET
     Route: 048
  37. DIOSMIN\HESPERIDIN [Concomitant]
     Active Substance: DIOSMIN\HESPERIDIN
     Indication: Product used for unknown indication
     Dosage: 500 MG, Q12H TWICE DAILY (1-0-1)
     Route: 065
  38. DIOSMIN\HESPERIDIN [Concomitant]
     Active Substance: DIOSMIN\HESPERIDIN
     Dosage: 500 MG, Q12H
     Route: 065
  39. DIOSMIN\HESPERIDIN [Concomitant]
     Active Substance: DIOSMIN\HESPERIDIN
     Dosage: 500 MG, Q12H (EVERY 12 HOUR)
     Route: 065
  40. DIOSMIN\HESPERIDIN [Concomitant]
     Active Substance: DIOSMIN\HESPERIDIN
     Dosage: 2 DOSAGE FORM 2 TABLET
     Route: 065
  41. IBUPROFEN [Concomitant]
     Active Substance: IBUPROFEN
     Indication: Product used for unknown indication
     Dosage: UNK, PRN
     Route: 065
  42. IBUPROFEN [Concomitant]
     Active Substance: IBUPROFEN
     Dosage: UNK, PRN  AS NECESSARY
     Route: 065
  43. PURINOL [Concomitant]
     Indication: Product used for unknown indication
     Dosage: 300 MG, QD, AFTER MEAL
     Route: 065
  44. PURINOL [Concomitant]
     Dosage: 300 MG, (1 DF), TID
     Route: 065
  45. PURINOL [Concomitant]
     Dosage: 1 DOSAGE FORM,(UNCOATED TABLET)  Q8H, EVERY 8 HOUR
     Route: 065
  46. OMEPRAZOLE [Concomitant]
     Active Substance: OMEPRAZOLE
     Indication: Product used for unknown indication
     Dosage: 20 MG, QD
     Route: 065
  47. LENTOCILIN [Concomitant]
     Indication: Product used for unknown indication
     Dosage: UNK UNK, S 2,4 MIU INJ 1 INJ. QMO (STRENGTH: 0.25MG/ML)
     Route: 030
  48. LENTOCILIN [Concomitant]
     Dosage: 2.4 MIU, MONTHLY
     Route: 065
  49. ALLERGOCROM [Concomitant]
     Indication: Product used for unknown indication
     Dosage: UNK UNK, BID, 20 MG/ML, TWICE DAILY, 2X1 (SPRAY)
     Route: 065
  50. ALLERGOCROM [Concomitant]
     Dosage: 20 MG/ML, TWICE DAILY, 2X1 (SPRAY)
     Route: 065
  51. ALLERGOCROM [Concomitant]
     Dosage: UNK, EVERY 12HR
     Route: 065
  52. METOPROLOL SUCCINATE [Concomitant]
     Active Substance: METOPROLOL SUCCINATE
     Indication: Product used for unknown indication
     Dosage: 50 MG, QD
     Route: 065
  53. METOPROLOL SUCCINATE [Concomitant]
     Active Substance: METOPROLOL SUCCINATE
     Dosage: 1 DOSAGE FORM
     Route: 065
  54. METOPROLOL SUCCINATE [Concomitant]
     Active Substance: METOPROLOL SUCCINATE
     Dosage: UNK, UNCOATED TABLET
     Route: 048
  55. OMEPRAZOLE [Concomitant]
     Active Substance: OMEPRAZOLE
     Indication: Product used for unknown indication
     Dosage: 20 MILLIGRAM, DAILY
     Route: 065
  56. OMEPRAZOLE [Concomitant]
     Active Substance: OMEPRAZOLE
     Dosage: 20 MG, ONCE DAILY (1-0-0) (1 HOUR BEFORE MEAL)
     Route: 065
  57. OMEPRAZOLE [Concomitant]
     Active Substance: OMEPRAZOLE
     Dosage: 1 TABLET, 1 HOUR BEFORE MEAL
     Route: 065
  58. NEUROL [Concomitant]
     Indication: Product used for unknown indication
     Dosage: 0.25 MG, BID
     Route: 065
  59. NEUROL [Concomitant]
     Dosage: 0.25 MG, TWICE DAILY (1-0-1)
     Route: 065
  60. NEUROL [Concomitant]
     Dosage: 2 DOSAGE FORM, UNCOATED
     Route: 048
  61. ACETAMINOPHEN [Concomitant]
     Active Substance: ACETAMINOPHEN
     Indication: Product used for unknown indication
     Dosage: UNK
     Route: 065
  62. CETIRIZINE HYDROCHLORIDE [Concomitant]
     Active Substance: CETIRIZINE HYDROCHLORIDE
     Indication: Product used for unknown indication
     Dosage: 10 MILLIGRAM, DAILY
     Route: 065
  63. CETIRIZINE HYDROCHLORIDE [Concomitant]
     Active Substance: CETIRIZINE HYDROCHLORIDE
     Dosage: 10 MG, ONCE DAILY (1-0-0)
     Route: 065
  64. CETIRIZINE HYDROCHLORIDE [Concomitant]
     Active Substance: CETIRIZINE HYDROCHLORIDE
     Dosage: 1 DOSAGE FORM, UNCOATED TABLET
     Route: 048
  65. ATORVASTATIN [Concomitant]
     Active Substance: ATORVASTATIN
     Indication: Product used for unknown indication
     Dosage: 20 MILLIGRAM, DAILY
     Route: 065
  66. ATORVASTATIN [Concomitant]
     Active Substance: ATORVASTATIN
     Dosage: 20 MG, ONCE DAILY (0-0-1)
     Route: 065
  67. ATORVASTATIN [Concomitant]
     Active Substance: ATORVASTATIN
     Dosage: 1 DOSAGE FORM, UNCOATED TABLET
     Route: 048
  68. ALLOPURINOL [Concomitant]
     Active Substance: ALLOPURINOL
     Indication: Product used for unknown indication
     Route: 065
  69. SINGULAIR [Concomitant]
     Active Substance: MONTELUKAST SODIUM
     Indication: Product used for unknown indication
     Dosage: 10 MG, QD  (1-0-0)
     Route: 065
  70. SINGULAIR [Concomitant]
     Active Substance: MONTELUKAST SODIUM
     Dosage: 10 MILLIGRAM, DAILY
     Route: 065
  71. SINGULAIR [Concomitant]
     Active Substance: MONTELUKAST SODIUM
     Dosage: 1 DOSAGE FORM, UNCOATED TABLET
     Route: 048
  72. METAMIZOLE [Concomitant]
     Active Substance: METAMIZOLE
     Indication: Product used for unknown indication
     Dosage: UNK, AS NEEDED
     Route: 065
  73. METAMIZOLE [Concomitant]
     Active Substance: METAMIZOLE
     Dosage: UNK UNK, AS NEEDED
     Route: 065
  74. METAMIZOLE [Concomitant]
     Active Substance: METAMIZOLE
     Dosage: UNK (UNK AS NECESSARY)
     Route: 065
  75. SODIUM BICARBONATE [Concomitant]
     Active Substance: SODIUM BICARBONATE
     Indication: Product used for unknown indication
     Dosage: 225 MILLIGRAM
     Route: 065
  76. TARTARIC ACID [Concomitant]
     Active Substance: TARTARIC ACID
     Indication: Product used for unknown indication
     Dosage: 225 MILLIGRAM
     Route: 065
  77. PHENOBARBITAL [Concomitant]
     Active Substance: PHENOBARBITAL
     Indication: Product used for unknown indication
     Dosage: 0.25 MG, Q12H (0.25 MILLIGRAM, EVERY 12HR)
     Route: 065
  78. SODIUM BICARBONATE [Concomitant]
     Active Substance: SODIUM BICARBONATE
     Indication: Product used for unknown indication
     Dosage: 225 MILLIGRAM
     Route: 065
  79. PENICILLIN G [Concomitant]
     Active Substance: PENICILLIN G
     Indication: Product used for unknown indication
     Dosage: UNK (UNK, 1 /MONTH)
     Route: 065
  80. INDAPAMIDE [Concomitant]
     Active Substance: INDAPAMIDE
     Indication: Product used for unknown indication
     Dosage: 2.5 MG, ONCE DAILY (1-0-0)
     Route: 065
  81. ERDOSTEINE [Concomitant]
     Active Substance: ERDOSTEINE
     Indication: Nasal congestion
     Dosage: 225 MG, BID, AT GREATER CONGESTION
     Route: 065
  82. ERDOSTEINE [Concomitant]
     Active Substance: ERDOSTEINE
     Indication: Nasal congestion
     Dosage: 225 MG, TWICE DAILY (1-1-0) (AT GREATER CONGESTION)
     Route: 065
  83. ERDOSTEINE [Concomitant]
     Active Substance: ERDOSTEINE
     Dosage: 225 MG, TWICE DAILY (1-1-0) (AT GREATER CONGESTION)
     Route: 065
  84. ERDOSTEINE [Concomitant]
     Active Substance: ERDOSTEINE
     Dosage: 2 DOSAGE FORM (2 TABLET)
     Route: 048
  85. ERDOSTEINE [Concomitant]
     Active Substance: ERDOSTEINE
     Dosage: 225 MG, Q12H
     Route: 065

REACTIONS (40)
  - Sudden death [Fatal]
  - Cardiomyopathy [Unknown]
  - Erysipelas [Unknown]
  - Transient ischaemic attack [Unknown]
  - Atrial fibrillation [Unknown]
  - Type 2 diabetes mellitus [Unknown]
  - Myocardial ischaemia [Unknown]
  - Marfan^s syndrome [Unknown]
  - Restlessness [Unknown]
  - Hypertension [Unknown]
  - Dyspepsia [Unknown]
  - Chronic obstructive pulmonary disease [Unknown]
  - Left ventricular dysfunction [Unknown]
  - Hyperuricaemia [Unknown]
  - Pruritus [Unknown]
  - Agitation [Unknown]
  - Hyperlipidaemia [Unknown]
  - Blood pressure increased [Unknown]
  - Decreased appetite [Unknown]
  - Spinal pain [Unknown]
  - Arthritis [Unknown]
  - Limb deformity [Unknown]
  - Hypersensitivity [Unknown]
  - Osteoarthritis [Unknown]
  - Tachycardia induced cardiomyopathy [Unknown]
  - Bronchitis [Unknown]
  - Rash [Unknown]
  - Rash [Unknown]
  - Headache [Unknown]
  - Bronchitis [Unknown]
  - Swelling [Unknown]
  - Oedema [Unknown]
  - Anaemia [Unknown]
  - Limb discomfort [Unknown]
  - Osteoarthritis [Unknown]
  - Chronic obstructive pulmonary disease [Unknown]
  - Hyperuricaemia [Unknown]
  - Left ventricular dysfunction [Unknown]
  - Erysipelas [Unknown]
  - Anaemia [Unknown]

NARRATIVE: CASE EVENT DATE: 20190301
